FAERS Safety Report 5555872-4 (Version None)
Quarter: 2007Q4

REPORT INFORMATION
  Report Type: 
  Country: None (occurrence: None)
  Receive Date: 20071213
  Receipt Date: 20071120
  Transmission Date: 20080405
  Serious: No
  Sender: FDA-Public Use
  Company Number: US-BOEHRINGER INGELHEIM PHARMACEUTICALS, INC.-2007-BP-25158BP

PATIENT
  Sex: Female

DRUGS (4)
  1. ATROVENT HFA [Suspect]
     Indication: CHRONIC OBSTRUCTIVE PULMONARY DISEASE
  2. ATROVENT HFA [Suspect]
     Indication: DYSPNOEA
  3. ADVAIR DISKUS 100/50 [Concomitant]
     Indication: DYSPNOEA
  4. ALBUTEROL SULFATE [Concomitant]
     Indication: DYSPNOEA

REACTIONS (1)
  - PANIC ATTACK [None]
